FAERS Safety Report 7202264-8 (Version None)
Quarter: 2010Q4

REPORT INFORMATION
  Report Type: 
  Country: None (occurrence: None)
  Receive Date: 20101229
  Receipt Date: 20101220
  Transmission Date: 20110411
  Serious: Yes (Other)
  Sender: FDA-Public Use
  Company Number: PHHY2010IL87404

PATIENT
  Age: 78 Year
  Sex: Male

DRUGS (1)
  1. CERTICAN [Suspect]
     Indication: PROPHYLAXIS AGAINST TRANSPLANT REJECTION
     Dosage: UNK
     Dates: end: 20101220

REACTIONS (3)
  - LEUKOCYTOCLASTIC VASCULITIS [None]
  - PRURITUS [None]
  - RASH [None]
